FAERS Safety Report 7340970-5 (Version None)
Quarter: 2011Q1

REPORT INFORMATION
  Report Type: 
  Country: None (occurrence: None)
  Receive Date: 20110309
  Receipt Date: 20110228
  Transmission Date: 20110831
  Serious: Yes (Hospitalization)
  Sender: FDA-Public Use
  Company Number: GB-ELI_LILLY_AND_COMPANY-GB201011000767

PATIENT
  Age: 76 Year
  Sex: Male

DRUGS (3)
  1. DALTEPARIN SODIUM [Suspect]
     Indication: LUNG NEOPLASM MALIGNANT
     Dosage: UNK, UNK
     Dates: start: 20100701
  2. PEMETREXED [Suspect]
     Indication: LUNG NEOPLASM MALIGNANT
     Dosage: UNK, UNK
     Route: 042
     Dates: end: 20100831
  3. CARBOPLATIN [Suspect]
     Indication: LUNG NEOPLASM MALIGNANT
     Dosage: UNK, UNK
     Dates: end: 20100831

REACTIONS (9)
  - CONVULSION [None]
  - DISORIENTATION [None]
  - CONFUSIONAL STATE [None]
  - HYPOPHAGIA [None]
  - BLOOD ALBUMIN DECREASED [None]
  - AMNESIA [None]
  - MIGRAINE [None]
  - ENCEPHALITIS [None]
  - ANAEMIA [None]
